FAERS Safety Report 4269227-6 (Version None)
Quarter: 2004Q1

REPORT INFORMATION
  Report Type: 
  Country: None (occurrence: None)
  Receive Date: 20040109
  Receipt Date: 20031229
  Transmission Date: 20041129
  Serious: Yes (Hospitalization)
  Sender: FDA-Public Use
  Company Number: 200312525

PATIENT
  Age: 81 Year
  Sex: Female
  Weight: 63.5036 kg

DRUGS (9)
  1. BOTOX [Suspect]
     Indication: BLEPHAROSPASM
     Dosage: 37 UNITS PRN IM
     Route: 042
  2. BOTOX [Suspect]
     Indication: MUSCLE SPASMS
     Dosage: 37 UNITS PRN IM
     Route: 042
  3. BACLOFEN [Concomitant]
  4. BENICAR [Concomitant]
  5. ALLEGRA [Concomitant]
  6. ASPIRIN [Concomitant]
  7. VITAMINS NOS [Concomitant]
  8. CALCIUM [Concomitant]
  9. PLAVIX [Concomitant]

REACTIONS (7)
  - ABDOMINAL PAIN UPPER [None]
  - BLOOD PRESSURE INCREASED [None]
  - HEADACHE [None]
  - MALAISE [None]
  - MUSCLE TWITCHING [None]
  - PNEUMONIA [None]
  - VOMITING [None]
